FAERS Safety Report 14690433 (Version 3)
Quarter: 2018Q2

REPORT INFORMATION
  Report Type: Spontaneous
  Country: JP (occurrence: JP)
  Receive Date: 20180328
  Receipt Date: 20180627
  Transmission Date: 20180711
  Serious: Yes (Life-Threatening, Hospitalization)
  Sender: FDA-Public Use
  Company Number: JP-UCBSA-2018012091

PATIENT
  Age: 27 Year
  Sex: Male

DRUGS (15)
  1. PROPOFOL. [Suspect]
     Active Substance: PROPOFOL
     Indication: STATUS EPILEPTICUS
  2. LASIX [Concomitant]
     Active Substance: FUROSEMIDE
     Indication: URINE OUTPUT DECREASED
     Dosage: 20 MG, ONCE DAILY (QD)
     Route: 042
  3. SODIUM PHOSPHATE [Concomitant]
     Active Substance: SODIUM PHOSPHATE
     Indication: BLOOD ELECTROLYTES
  4. HEPAFLUSH [Concomitant]
     Active Substance: HEPARIN SODIUM
     Indication: ANTICOAGULANT THERAPY
  5. DIAZEPAM. [Concomitant]
     Active Substance: DIAZEPAM
     Indication: STATUS EPILEPTICUS
     Dosage: 10 MG, 2X/DAY (BID)
     Route: 042
     Dates: start: 20180302, end: 20180302
  6. HEPARIN [Concomitant]
     Active Substance: HEPARIN SODIUM
     Indication: THROMBOSIS PROPHYLAXIS
  7. OMEPRAZOLE. [Suspect]
     Active Substance: OMEPRAZOLE
     Indication: PROPHYLAXIS AGAINST GASTROINTESTINAL ULCER
     Dosage: 20 MG, 2X/DAY (BID)
     Route: 042
     Dates: start: 20180302, end: 20180303
  8. UNASYN S [Concomitant]
     Active Substance: AMPICILLIN SODIUM\SULBACTAM SODIUM
     Indication: STATUS EPILEPTICUS
     Dosage: 3 G, 2X/DAY (BID)
     Route: 041
     Dates: start: 20180302, end: 20180303
  9. NORADRENALINE [Concomitant]
     Active Substance: NOREPINEPHRINE
     Indication: BLOOD PRESSURE MANAGEMENT
     Dosage: UNK
     Dates: start: 20180302, end: 20180302
  10. FOSPHENYTOIN SODIUM. [Suspect]
     Active Substance: FOSPHENYTOIN SODIUM
     Indication: STATUS EPILEPTICUS
     Dosage: 1350 MG, ONCE DAILY (QD)
     Route: 041
     Dates: start: 20180302, end: 20180302
  11. PROPOFOL. [Suspect]
     Active Substance: PROPOFOL
     Indication: SEDATION
     Dosage: 15 ML, HOURLY
     Route: 042
     Dates: start: 20180302, end: 20180303
  12. E KEPPRA [Suspect]
     Active Substance: LEVETIRACETAM
     Indication: EPILEPSY
     Dosage: 500 MG DAILY
     Route: 048
     Dates: end: 20180301
  13. E KEPPRA [Suspect]
     Active Substance: LEVETIRACETAM
     Indication: STATUS EPILEPTICUS
     Dosage: 3000 MG A DAY
     Route: 041
     Dates: start: 20180302, end: 20180302
  14. E KEPPRA [Suspect]
     Active Substance: LEVETIRACETAM
     Dosage: 2500MG A DAY
     Route: 041
     Dates: start: 20180303, end: 20180303
  15. FENTANYL. [Concomitant]
     Active Substance: FENTANYL
     Indication: URINE OUTPUT DECREASED

REACTIONS (4)
  - Off label use [Unknown]
  - Status epilepticus [Recovered/Resolved]
  - Acute kidney injury [Recovering/Resolving]
  - Rhabdomyolysis [Recovering/Resolving]

NARRATIVE: CASE EVENT DATE: 20180302
